FAERS Safety Report 25959011 (Version 1)
Quarter: 2025Q4

REPORT INFORMATION
  Report Type: Spontaneous
  Country: US (occurrence: US)
  Receive Date: 20251025
  Receipt Date: 20251025
  Transmission Date: 20260119
  Serious: No
  Sender: TEVA
  Company Number: US-TEVA-VS-3380046

PATIENT
  Age: 34 Year
  Sex: Female

DRUGS (3)
  1. OXYBUTYNIN [Suspect]
     Active Substance: OXYBUTYNIN
     Indication: Product used for unknown indication
     Route: 065
  2. DUPIXENT [Suspect]
     Active Substance: DUPILUMAB
     Indication: Eczema
     Dosage: LOADING DOSE (ONCE)
     Route: 058
     Dates: start: 202312
  3. DUPIXENT [Suspect]
     Active Substance: DUPILUMAB
     Indication: Eczema
     Dosage: MAINTENANCE DOSE
     Route: 058

REACTIONS (8)
  - Rash macular [Not Recovered/Not Resolved]
  - Eczema [Recovering/Resolving]
  - Rash erythematous [Unknown]
  - Condition aggravated [Unknown]
  - Pruritus [Not Recovered/Not Resolved]
  - Skin burning sensation [Unknown]
  - Product use in unapproved indication [Unknown]
  - Rash [Unknown]

NARRATIVE: CASE EVENT DATE: 20250801
